FAERS Safety Report 5514056-6 (Version None)
Quarter: 2007Q4

REPORT INFORMATION
  Report Type: 
  Country: None (occurrence: None)
  Receive Date: 20071109
  Receipt Date: 20071109
  Transmission Date: 20080405
  Serious: Yes (Hospitalization)
  Sender: FDA-Public Use
  Company Number: None

PATIENT
  Age: 70 Year
  Sex: Male

DRUGS (13)
  1. IODIXANOL 320MGI/ML AMERSHAM HEALTH [Suspect]
     Indication: AORTIC ANEURYSM
     Dosage: 150ML ONCE IV BOLUS
     Route: 040
     Dates: start: 20070221, end: 20070221
  2. ERYTHROPOETIN ALFA [Concomitant]
  3. FERRLICIT [Concomitant]
  4. NS PLUS D5W [Concomitant]
  5. SODIUM BICARBONATE [Concomitant]
  6. ADVAIR DISKUS 100/50 [Concomitant]
  7. PROPOFOL [Concomitant]
  8. ASPIRIN [Concomitant]
  9. CLOPIDOGREL [Concomitant]
  10. ACETYLCYSTEINE [Concomitant]
  11. ESOMEPRAZOLE [Concomitant]
  12. AMIODARONE [Concomitant]
  13. DONEPEZIL HCL [Concomitant]

REACTIONS (9)
  - BLOOD CREATININE INCREASED [None]
  - FAT EMBOLISM [None]
  - HAEMATURIA [None]
  - NEPHROPATHY [None]
  - OLIGURIA [None]
  - POST PROCEDURAL COMPLICATION [None]
  - RENAL FAILURE ACUTE [None]
  - RENAL TUBULAR NECROSIS [None]
  - RENAL VESSEL DISORDER [None]
